FAERS Safety Report 22333010 (Version 1)
Quarter: 2023Q2

REPORT INFORMATION
  Report Type: Spontaneous
  Country: AT (occurrence: AT)
  Receive Date: 20230517
  Receipt Date: 20230517
  Transmission Date: 20230721
  Serious: Yes (Hospitalization, Other)
  Sender: FDA-Public Use
  Company Number: AT-MPL-000020

PATIENT
  Age: 22 Year
  Sex: Male

DRUGS (6)
  1. LACOSAMIDE [Suspect]
     Active Substance: LACOSAMIDE
     Indication: Focal dyscognitive seizures
     Route: 065
  2. LACOSAMIDE [Suspect]
     Active Substance: LACOSAMIDE
     Indication: Focal dyscognitive seizures
     Route: 065
  3. LEVETIRACETAM [Suspect]
     Active Substance: LEVETIRACETAM
     Indication: Focal dyscognitive seizures
     Route: 065
  4. LEVETIRACETAM [Suspect]
     Active Substance: LEVETIRACETAM
     Indication: Focal dyscognitive seizures
     Route: 065
  5. PHENYTOIN [Suspect]
     Active Substance: PHENYTOIN
     Indication: Focal dyscognitive seizures
     Route: 065
  6. PHENYTOIN [Suspect]
     Active Substance: PHENYTOIN
     Indication: Focal dyscognitive seizures
     Route: 065

REACTIONS (13)
  - Cerebral atrophy [Unknown]
  - Optic atrophy [Unknown]
  - Bundle branch block right [Unknown]
  - Myopathy [Unknown]
  - Psychomotor retardation [Not Recovered/Not Resolved]
  - Peroneal nerve palsy [Unknown]
  - Ataxia [Unknown]
  - Fine motor skill dysfunction [Not Recovered/Not Resolved]
  - Drug resistance [Unknown]
  - Simple partial seizures [Unknown]
  - Focal dyscognitive seizures [Unknown]
  - Drug ineffective [Unknown]
  - Epilepsy [Unknown]
